FAERS Safety Report 18276906 (Version 7)
Quarter: 2021Q2

REPORT INFORMATION
  Report Type: Spontaneous
  Country: US (occurrence: US)
  Receive Date: 20200917
  Receipt Date: 20210602
  Transmission Date: 20210717
  Serious: No
  Sender: FDA-Public Use
  Company Number: NVSC2020US254163

PATIENT
  Sex: Female
  Weight: 65.76 kg

DRUGS (1)
  1. ZOFRAN [Suspect]
     Active Substance: ONDANSETRON HYDROCHLORIDE
     Indication: MORNING SICKNESS
     Dosage: 04 MG, Q6H
     Route: 048
     Dates: start: 20141126, end: 201506

REACTIONS (11)
  - Emotional distress [Unknown]
  - Product use in unapproved indication [Unknown]
  - Anxiety [Unknown]
  - Dysuria [Unknown]
  - Ovarian cyst [Unknown]
  - Pain [Unknown]
  - Amenorrhoea [Unknown]
  - Abdominal pain lower [Unknown]
  - Injury [Unknown]
  - Anhedonia [Unknown]
  - Maternal exposure during pregnancy [Unknown]
